FAERS Safety Report 9882317 (Version 2)
Quarter: 2014Q1

REPORT INFORMATION
  Report Type: Spontaneous
  Country: US (occurrence: US)
  Receive Date: 20140207
  Receipt Date: 20140227
  Transmission Date: 20141002
  Serious: Yes (Hospitalization)
  Sender: FDA-Public Use
  Company Number: US-GLAXOSMITHKLINE-A1059035A

PATIENT
  Sex: Female

DRUGS (5)
  1. FLONASE [Suspect]
     Indication: HYPERSENSITIVITY
     Dosage: 1SPR TWICE PER DAY
     Route: 045
  2. FLUTICASONE PROPIONATE [Suspect]
     Indication: HYPERSENSITIVITY
     Dosage: 1SPR TWICE PER DAY
     Route: 045
  3. BLOOD PRESSURE MEDICATION [Suspect]
     Indication: HYPERTENSION
     Route: 065
  4. GLUMETZA [Concomitant]
  5. AMARYL [Concomitant]

REACTIONS (3)
  - Cerebrovascular accident [Unknown]
  - Memory impairment [Unknown]
  - Drug ineffective [Unknown]
